FAERS Safety Report 15143753 (Version 1)
Quarter: 2018Q3

REPORT INFORMATION
  Report Type: Spontaneous
  Country: US (occurrence: US)
  Receive Date: 20180713
  Receipt Date: 20180713
  Transmission Date: 20181010
  Serious: No
  Sender: FDA-Public Use
  Company Number: US-AMGEN-USASP2010003563

PATIENT
  Age: 76 Year
  Sex: Male
  Weight: 74.83 kg

DRUGS (7)
  1. PROCRIT [Suspect]
     Active Substance: ERYTHROPOIETIN
     Dosage: UNK
  2. ATENOLOL. [Concomitant]
     Active Substance: ATENOLOL
     Indication: BLOOD PRESSURE MEASUREMENT
     Dosage: 25 MG, QD
     Route: 048
  3. NORVASC [Concomitant]
     Active Substance: AMLODIPINE BESYLATE
     Indication: BLOOD PRESSURE MEASUREMENT
     Dosage: 10 MG, QD
     Route: 048
  4. PROCRIT [Suspect]
     Active Substance: ERYTHROPOIETIN
  5. HYDROXYUREA. [Concomitant]
     Active Substance: HYDROXYUREA
     Indication: PLATELET COUNT INCREASED
     Dosage: 1000 IU, QD
     Route: 048
     Dates: start: 2010
  6. LOSARTAN. [Concomitant]
     Active Substance: LOSARTAN
     Indication: HYPERTENSION
     Dosage: 100 MG, QD
     Route: 048
  7. PROCRIT [Suspect]
     Active Substance: ERYTHROPOIETIN
     Indication: CHRONIC KIDNEY DISEASE
     Dosage: 40000 IU, QWK
     Route: 058
     Dates: start: 20100723

REACTIONS (1)
  - Skin exfoliation [Not Recovered/Not Resolved]

NARRATIVE: CASE EVENT DATE: 201010
